FAERS Safety Report 8906727 (Version 4)
Quarter: 2013Q1

REPORT INFORMATION
  Report Type: Spontaneous
  Country: FR (occurrence: FR)
  Receive Date: 20121114
  Receipt Date: 20130305
  Transmission Date: 20140127
  Serious: Yes (Hospitalization, Other)
  Sender: FDA-Public Use
  Company Number: FR-PFIZER INC-2012280515

PATIENT
  Age: 58 Year
  Sex: Male

DRUGS (5)
  1. TAHOR [Suspect]
     Dosage: 1 DF, DAILY
     Route: 048
     Dates: start: 2008, end: 2010
  2. ZYLORIC [Suspect]
     Dosage: 1 DF (200MG), DAILY
     Route: 048
     Dates: start: 2008
  3. CRESTOR [Suspect]
     Dosage: 1 DF, DAILY
     Route: 048
     Dates: start: 201001, end: 20110515
  4. COZAAR [Suspect]
     Dosage: 1 DF (50 MG), DAILY
     Route: 048
     Dates: start: 2008, end: 201001
  5. COZAAR [Suspect]
     Dosage: 1 DF(100MG), DAILY
     Route: 048
     Dates: start: 201001

REACTIONS (9)
  - Photodermatosis [Recovered/Resolved]
  - Prurigo [Recovered/Resolved]
  - Pruritus [Recovered/Resolved]
  - Rash [Recovered/Resolved]
  - Erythema of eyelid [Unknown]
  - Nasal oedema [Unknown]
  - Excoriation [Unknown]
  - Enterobiasis [Unknown]
  - Hypersensitivity [Unknown]
